FAERS Safety Report 24970248 (Version 1)
Quarter: 2025Q1

REPORT INFORMATION
  Report Type: Spontaneous
  Country: US (occurrence: US)
  Receive Date: 20250214
  Receipt Date: 20250214
  Transmission Date: 20250408
  Serious: Yes (Other)
  Sender: CHEPLAPHARM
  Company Number: US-CHEPLA-2025001855

PATIENT
  Sex: Female

DRUGS (3)
  1. OLANZAPINE [Suspect]
     Active Substance: OLANZAPINE
  2. CYMBALTA [Suspect]
     Active Substance: DULOXETINE HYDROCHLORIDE
     Indication: Depression
  3. INSULIN LISPRO [Concomitant]
     Active Substance: INSULIN LISPRO
     Indication: Injection site bruising

REACTIONS (8)
  - Cerebrovascular accident [Unknown]
  - Seizure [Unknown]
  - Disability [Unknown]
  - Brain injury [Unknown]
  - Malaise [Unknown]
  - Emotional disorder [Unknown]
  - Overdose [Unknown]
  - Feeling abnormal [Unknown]
